FAERS Safety Report 5418078-5 (Version None)
Quarter: 2007Q3

REPORT INFORMATION
  Report Type: 
  Country: None (occurrence: None)
  Receive Date: 20070817
  Receipt Date: 20070808
  Transmission Date: 20080115
  Serious: Yes (Hospitalization, Other)
  Sender: FDA-Public Use
  Company Number: US-AMGEN-US235375

PATIENT
  Sex: Female
  Weight: 98 kg

DRUGS (4)
  1. SENSIPAR [Suspect]
     Indication: HYPERPARATHYROIDISM SECONDARY
     Route: 048
     Dates: start: 20041118, end: 20050803
  2. SENSIPAR [Suspect]
     Route: 048
     Dates: start: 20060501
  3. ZEMPLAR [Concomitant]
     Route: 065
     Dates: start: 19990623
  4. PHOSLO [Concomitant]
     Route: 065
     Dates: start: 19990211

REACTIONS (2)
  - CALCIPHYLAXIS [None]
  - CARDIAC FAILURE [None]
